FAERS Safety Report 15637668 (Version 1)
Quarter: 2018Q4

REPORT INFORMATION
  Report Type: Spontaneous
  Country: US (occurrence: US)
  Receive Date: 20181120
  Receipt Date: 20181120
  Transmission Date: 20190205
  Serious: No
  Sender: FDA-Public Use
  Company Number: US-JNJFOC-20180613145

PATIENT
  Sex: Female
  Weight: 56 kg

DRUGS (9)
  1. IMBRUVICA [Suspect]
     Active Substance: IBRUTINIB
     Indication: CHRONIC LYMPHOCYTIC LEUKAEMIA
     Route: 048
     Dates: start: 20141016
  2. LOSARTAN. [Concomitant]
     Active Substance: LOSARTAN
  3. RANEXA [Concomitant]
     Active Substance: RANOLAZINE
  4. NORVASC [Concomitant]
     Active Substance: AMLODIPINE BESYLATE
  5. IMBRUVICA [Suspect]
     Active Substance: IBRUTINIB
     Indication: CHRONIC LYMPHOCYTIC LEUKAEMIA
     Route: 048
     Dates: start: 20180427
  6. FLONASE [Concomitant]
     Active Substance: FLUTICASONE PROPIONATE
  7. POTASSIUM [Concomitant]
     Active Substance: POTASSIUM
  8. EVISTA [Concomitant]
     Active Substance: RALOXIFENE HYDROCHLORIDE
  9. CELEBREX [Concomitant]
     Active Substance: CELECOXIB

REACTIONS (1)
  - Muscle spasms [Not Recovered/Not Resolved]
